FAERS Safety Report 24419744 (Version 1)
Quarter: 2024Q4

REPORT INFORMATION
  Report Type: Spontaneous
  Country: CA (occurrence: CA)
  Receive Date: 20241010
  Receipt Date: 20241010
  Transmission Date: 20250114
  Serious: Yes (Disabling)
  Sender: GALDERMA
  Company Number: CA-GALDERMA-CA2024014705

PATIENT

DRUGS (1)
  1. METROGEL [Suspect]
     Active Substance: METRONIDAZOLE
     Indication: Nasal injury
     Dosage: 1 DOSAGE FORM, QD
     Route: 061

REACTIONS (2)
  - Migraine [Recovered/Resolved]
  - Product use in unapproved indication [Recovered/Resolved]
